FAERS Safety Report 6236686-9 (Version None)
Quarter: 2009Q2

REPORT INFORMATION
  Report Type: 
  Country: None (occurrence: None)
  Receive Date: 20090619
  Receipt Date: 20090213
  Transmission Date: 20091009
  Serious: No
  Sender: FDA-Public Use
  Company Number: US-ASTRAZENECA-2009UW04236

PATIENT
  Sex: Female

DRUGS (9)
  1. ATACAND [Suspect]
     Indication: HYPERTENSION
     Route: 048
     Dates: start: 20070101
  2. INSULIN [Concomitant]
     Indication: DIABETES MELLITUS
     Route: 058
  3. METFORMIN HCL [Concomitant]
     Indication: DIABETES MELLITUS
     Route: 048
  4. GLIPIZIDE [Concomitant]
     Indication: DIABETES MELLITUS
     Route: 048
  5. LANTUS [Concomitant]
     Indication: DIABETES MELLITUS
     Route: 058
  6. VITAMIN D [Concomitant]
     Route: 048
  7. GINKGO BILOBA [Concomitant]
     Route: 048
  8. TIMOPTIC [Concomitant]
     Indication: GLAUCOMA
     Route: 061
  9. TRUSOPT [Concomitant]
     Indication: GLAUCOMA
     Route: 061

REACTIONS (1)
  - FLUID RETENTION [None]
